FAERS Safety Report 21590520 (Version 1)
Quarter: 2022Q4

REPORT INFORMATION
  Report Type: Spontaneous
  Country: US (occurrence: US)
  Receive Date: 20221114
  Receipt Date: 20221114
  Transmission Date: 20230113
  Serious: Yes (Hospitalization, Other)
  Sender: FDA-Public Use
  Company Number: US-RVL_Pharmaceuticals-USA-POI1255202200371

PATIENT
  Age: 79 Year
  Sex: Male

DRUGS (1)
  1. UPNEEQ [Suspect]
     Active Substance: OXYMETAZOLINE HYDROCHLORIDE
     Indication: Eyelid ptosis
     Dosage: OS
     Route: 047
     Dates: start: 2021, end: 20221017

REACTIONS (4)
  - Coronary artery bypass [Recovering/Resolving]
  - Aortic valve replacement [Recovering/Resolving]
  - Post procedural haemorrhage [Recovered/Resolved]
  - Septic shock [Recovering/Resolving]

NARRATIVE: CASE EVENT DATE: 20221001
